FAERS Safety Report 20589001 (Version 3)
Quarter: 2022Q2

REPORT INFORMATION
  Report Type: Report from Study
  Country: US (occurrence: US)
  Receive Date: 20220314
  Receipt Date: 20220603
  Transmission Date: 20220720
  Serious: No
  Sender: FDA-Public Use
  Company Number: US-NOVARTISTESTPH-NVSC2022US058658

PATIENT
  Sex: Female

DRUGS (1)
  1. KESIMPTA [Suspect]
     Active Substance: OFATUMUMAB
     Indication: Product used for unknown indication
     Dosage: UNK
     Route: 065

REACTIONS (10)
  - Memory impairment [Unknown]
  - Gait disturbance [Unknown]
  - Balance disorder [Unknown]
  - Muscle spasms [Unknown]
  - Illiteracy [Unknown]
  - Stress [Unknown]
  - Somnolence [Unknown]
  - Headache [Unknown]
  - Spinal pain [Unknown]
  - Fatigue [Unknown]
